FAERS Safety Report 25558319 (Version 1)
Quarter: 2025Q3

REPORT INFORMATION
  Report Type: Spontaneous
  Country: US (occurrence: US)
  Receive Date: 20250715
  Receipt Date: 20250715
  Transmission Date: 20251021
  Serious: No
  Sender: NOVO NORDISK
  Company Number: US-NOVOPROD-1444183

PATIENT
  Sex: Female

DRUGS (1)
  1. OZEMPIC [Suspect]
     Active Substance: SEMAGLUTIDE
     Indication: Weight control
     Dosage: 2 MG, QW
     Route: 058
     Dates: start: 202409, end: 202504

REACTIONS (6)
  - Dry mouth [Recovered/Resolved]
  - Dry eye [Recovered/Resolved]
  - Nausea [Recovered/Resolved]
  - Vomiting [Recovered/Resolved]
  - Constipation [Unknown]
  - Product use in unapproved indication [Unknown]
